FAERS Safety Report 10200206 (Version 1)
Quarter: 2014Q2

REPORT INFORMATION
  Report Type: Spontaneous
  Country: PL (occurrence: PL)
  Receive Date: 20140527
  Receipt Date: 20140527
  Transmission Date: 20141212
  Serious: Yes (Hospitalization)
  Sender: FDA-Public Use
  Company Number: PHHY2014PL062311

PATIENT
  Age: 28 Year
  Sex: Female

DRUGS (2)
  1. KETOPROFEN [Suspect]
     Indication: DYSMENORRHOEA
     Dosage: 200 MG, UNK
  2. PARACETAMOL [Suspect]
     Indication: DYSMENORRHOEA
     Dosage: 4 G, UNK

REACTIONS (1)
  - Haematemesis [Unknown]
